APPROVED DRUG PRODUCT: SUMATRIPTAN SUCCINATE
Active Ingredient: SUMATRIPTAN SUCCINATE
Strength: EQ 100MG BASE
Dosage Form/Route: TABLET;ORAL
Application: A206019 | Product #003 | TE Code: AB
Applicant: IPCA LABORATORIES LTD
Approved: Jul 15, 2025 | RLD: No | RS: No | Type: RX